FAERS Safety Report 8208281-3 (Version None)
Quarter: 2012Q1

REPORT INFORMATION
  Report Type: 
  Country: None (occurrence: None)
  Receive Date: 20120314
  Receipt Date: 20120310
  Transmission Date: 20120608
  Serious: Yes (Death)
  Sender: FDA-Public Use
  Company Number: PHHY2012SV021609

PATIENT
  Age: 82 Year
  Sex: Male

DRUGS (1)
  1. EXELON [Suspect]
     Indication: DEMENTIA
     Dosage: 4.6 MG/ 24 HOURS,ONE PATCH PER DAY
     Route: 062

REACTIONS (3)
  - DEATH [None]
  - LUNG INFECTION [None]
  - DECREASED APPETITE [None]
